FAERS Safety Report 18949784 (Version 1)
Quarter: 2021Q1

REPORT INFORMATION
  Report Type: Spontaneous
  Country: US (occurrence: US)
  Receive Date: 20210227
  Receipt Date: 20210227
  Transmission Date: 20210420
  Serious: No
  Sender: FDA-Public Use
  Company Number: US-ROCHE-2638080

PATIENT
  Age: 51 Year
  Sex: Female
  Weight: 63.2 kg

DRUGS (20)
  1. EXCEDRIN TENSION HEADACHE [Concomitant]
     Active Substance: ACETAMINOPHEN\CAFFEINE
     Dosage: DOSE : 500?65 MG, QD AND PM
     Route: 048
  2. DULOXETINE HCL [Concomitant]
     Active Substance: DULOXETINE HYDROCHLORIDE
     Dosage: ORAL CAPSULE DELAYED RELEASE PARTICLES, TAKE 1 CAPSULE BY MOUTH EVERY DAY
     Route: 048
     Dates: start: 20191015
  3. CLOBETASOL PROPIONATE. [Concomitant]
     Active Substance: CLOBETASOL PROPIONATE
     Dosage: APPLY TO AREA TWICE A DAY FOR 2 WEEKS, THEN EVERY DAY FOR 2 WEEKS, THEN 2?3 TIMES?WEEKLY THEREAFTER
     Route: 061
     Dates: start: 20191205
  4. CITRUCEL [Concomitant]
     Active Substance: METHYLCELLULOSE (4000 MPA.S)
     Dosage: TAKE AS NEEDED
     Route: 048
     Dates: start: 20200604
  5. TYLENOL [Concomitant]
     Active Substance: ACETAMINOPHEN
     Dosage: TAKE AS NEEDED
     Route: 048
     Dates: start: 20200604
  6. PHILLIPS COLON HEALTH [Concomitant]
     Dosage: TAKE 1 CAPSULE BY MOUTH DAILY
     Route: 048
     Dates: start: 20200604
  7. CYCLOBENZAPRINE HCL [Concomitant]
     Active Substance: CYCLOBENZAPRINE HYDROCHLORIDE
     Indication: MUSCLE SPASMS
     Route: 048
     Dates: start: 20200526
  8. PREVACID [Concomitant]
     Active Substance: LANSOPRAZOLE
     Dosage: DELAYED RELEASE CAPSULE, TAKE AS NEEDED
     Route: 048
     Dates: start: 20200604
  9. MUCINEX [Concomitant]
     Active Substance: GUAIFENESIN
     Dosage: EXTENDED RELEASE 12 HOUR, TAKE 1 TABLET BY MOUTH TWICE DAILY
     Route: 048
     Dates: start: 20200604
  10. METOPROLOL SUCCINATE. [Concomitant]
     Active Substance: METOPROLOL SUCCINATE
     Dosage: TAKE 1 TABLET BY MOUTH EVERY DAY
     Route: 048
     Dates: start: 20191224
  11. EPINEPHRINE. [Concomitant]
     Active Substance: EPINEPHRINE
     Indication: HYPERSENSITIVITY
     Dosage: 0.3MG/0.3ML, INJECTION SOLUTION AUTO INJECTOR, USE AS DIRECTED (INJECT CONTENTS?OF 1 DEVICE, 0.3MG,
     Route: 030
     Dates: start: 20200629
  12. TUMS ANTACID [Concomitant]
     Dosage: TAKE AS NEEDED
     Route: 048
     Dates: start: 20200604
  13. VITAMIN D [COLECALCIFEROL] [Concomitant]
     Active Substance: CHOLECALCIFEROL
     Dosage: DOSE : 50 MCG (2000 UT), TAKE 1 TABLET BY MOUTH EVERY DAY1
     Route: 048
     Dates: start: 20200518
  14. LOSARTAN POTASSIUM. [Concomitant]
     Active Substance: LOSARTAN POTASSIUM
     Route: 048
     Dates: start: 20200324
  15. TERCONAZOLE. [Concomitant]
     Active Substance: TERCONAZOLE
     Route: 061
     Dates: start: 20200604
  16. CETRIZINE [Concomitant]
     Active Substance: CETIRIZINE HYDROCHLORIDE
     Route: 048
     Dates: start: 20200604
  17. JUNEL FE 1/20 [Concomitant]
     Active Substance: ETHINYL ESTRADIOL\NORETHINDRONE ACETATE
     Dosage: 1?20 MCG, TAKE 1 TABLET BY MOUTH EVERY DAY
     Route: 048
     Dates: start: 20191122
  18. XOLAIR [Suspect]
     Active Substance: OMALIZUMAB
     Indication: CHRONIC SPONTANEOUS URTICARIA
     Route: 058
     Dates: start: 20200706
  19. XOLAIR [Suspect]
     Active Substance: OMALIZUMAB
     Route: 058
     Dates: start: 20200629, end: 20200707
  20. FEXOFENADINE HCL [Concomitant]
     Active Substance: FEXOFENADINE HYDROCHLORIDE
     Dosage: TAKE 2 TABLETS BID
     Route: 048

REACTIONS (4)
  - Nausea [Recovered/Resolved]
  - Dizziness [Recovered/Resolved]
  - Arthralgia [Recovered/Resolved]
  - Headache [Recovered/Resolved]

NARRATIVE: CASE EVENT DATE: 20200629
